FAERS Safety Report 9482053 (Version 3)
Quarter: 2013Q4

REPORT INFORMATION
  Report Type: Spontaneous
  Country: US (occurrence: US)
  Receive Date: 20130828
  Receipt Date: 20131011
  Transmission Date: 20140711
  Serious: Yes (Other)
  Sender: FDA-Public Use
  Company Number: US-JNJFOC-20130812565

PATIENT
  Sex: Male
  Weight: 39.92 kg

DRUGS (5)
  1. REMICADE [Suspect]
     Indication: ANAL FISTULA
     Dosage: 7TH INFUSION
     Route: 042
     Dates: start: 20120604, end: 201307
  2. REMICADE [Suspect]
     Indication: ANAL FISTULA
     Dosage: 3 DOSES 5 MG/KG; STOP DATE: APR-MAY OF 2013
     Route: 042
     Dates: start: 20120628, end: 201305
  3. REMICADE [Suspect]
     Indication: CROHN^S DISEASE
     Dosage: 7TH INFUSION
     Route: 042
     Dates: start: 20120604, end: 201307
  4. REMICADE [Suspect]
     Indication: CROHN^S DISEASE
     Dosage: 3 DOSES 5 MG/KG; STOP DATE: APR-MAY OF 2013
     Route: 042
     Dates: start: 20120628, end: 201305
  5. FLAGYL [Suspect]
     Indication: PRODUCT USED FOR UNKNOWN INDICATION
     Route: 048

REACTIONS (5)
  - Infusion related reaction [Unknown]
  - Anaphylactic reaction [Unknown]
  - Cyanosis [Unknown]
  - Dyspnoea [Recovered/Resolved]
  - Throat irritation [Recovered/Resolved]
